FAERS Safety Report 6290630-7 (Version None)
Quarter: 2009Q3

REPORT INFORMATION
  Report Type: 
  Country: None (occurrence: None)
  Receive Date: 20090730
  Receipt Date: 20090720
  Transmission Date: 20100115
  Serious: Yes (Other)
  Sender: FDA-Public Use
  Company Number: PHEH2009US07511

PATIENT
  Sex: Female

DRUGS (2)
  1. AREDIA [Suspect]
     Dosage: UNK MG, UNK
  2. ZOMETA [Suspect]
     Dosage: 4 MG, QMO
     Route: 042

REACTIONS (10)
  - ANHEDONIA [None]
  - ANXIETY [None]
  - COUGH [None]
  - DIARRHOEA [None]
  - GENERAL PHYSICAL HEALTH DETERIORATION [None]
  - MALIGNANT NEOPLASM PROGRESSION [None]
  - METASTASES TO LIVER [None]
  - OSTEONECROSIS [None]
  - PAIN [None]
  - WEIGHT DECREASED [None]
